FAERS Safety Report 23106640 (Version 2)
Quarter: 2023Q4

REPORT INFORMATION
  Report Type: Spontaneous
  Country: US (occurrence: US)
  Receive Date: 20231026
  Receipt Date: 20231201
  Transmission Date: 20240109
  Serious: Yes (Death, Hospitalization)
  Sender: FDA-Public Use
  Company Number: US-002147023-NVSC2023US228755

PATIENT
  Sex: Male

DRUGS (1)
  1. PLUVICTO [Suspect]
     Active Substance: LUTETIUM LU-177 VIPIVOTIDE TETRAXETAN
     Indication: Product used for unknown indication
     Dosage: UNK, Q6WEEKS
     Route: 042
     Dates: start: 20230823, end: 20231003

REACTIONS (3)
  - Prostate cancer metastatic [Fatal]
  - Malignant ascites [Fatal]
  - Pleural effusion [Fatal]
